FAERS Safety Report 8436291-X (Version None)
Quarter: 2012Q2

REPORT INFORMATION
  Report Type: 
  Country: None (occurrence: None)
  Receive Date: 20120614
  Receipt Date: 20120606
  Transmission Date: 20120825
  Serious: Yes (Other)
  Sender: FDA-Public Use
  Company Number: DE-ROCHE-1077839

PATIENT
  Sex: Male
  Weight: 92 kg

DRUGS (4)
  1. LEUCOVORIN CALCIUM [Suspect]
     Indication: COLON CANCER METASTATIC
  2. OXALIPLATIN [Suspect]
     Indication: COLON CANCER METASTATIC
  3. FLUOROURACIL [Suspect]
     Indication: COLON CANCER METASTATIC
  4. AVASTIN [Suspect]
     Indication: COLON CANCER METASTATIC

REACTIONS (2)
  - HAEMOLYTIC ANAEMIA [None]
  - BACK PAIN [None]
